FAERS Safety Report 23363641 (Version 1)
Quarter: 2024Q1

REPORT INFORMATION
  Report Type: Report from Study
  Country: US (occurrence: US)
  Receive Date: 20240103
  Receipt Date: 20240103
  Transmission Date: 20240410
  Serious: Yes (Other)
  Sender: FDA-Public Use
  Company Number: US-ABBVIE-5566671

PATIENT
  Sex: Female

DRUGS (7)
  1. VENCLEXTA [Suspect]
     Active Substance: VENETOCLAX
     Indication: Chronic lymphocytic leukaemia
     Dosage: DRUG STOP DATE 2022
     Route: 048
     Dates: start: 20221101
  2. VENCLEXTA [Suspect]
     Active Substance: VENETOCLAX
     Indication: Chronic lymphocytic leukaemia
     Dosage: DRUG START DATE 2022
     Route: 048
     Dates: end: 202307
  3. VENCLEXTA [Suspect]
     Active Substance: VENETOCLAX
     Indication: Chronic lymphocytic leukaemia
     Dosage: DRUG STOP DATE 2023
     Route: 048
     Dates: start: 20231020
  4. VENCLEXTA [Suspect]
     Active Substance: VENETOCLAX
     Indication: Chronic lymphocytic leukaemia
     Dosage: DRUG START DATE 2023?DRUG STOP DATE 2023
     Route: 048
  5. VENCLEXTA [Suspect]
     Active Substance: VENETOCLAX
     Indication: Chronic lymphocytic leukaemia
     Dosage: DRUG STOP DATE 2023
     Route: 048
     Dates: start: 202311
  6. VENCLEXTA [Suspect]
     Active Substance: VENETOCLAX
     Indication: Chronic lymphocytic leukaemia
     Route: 048
     Dates: start: 20231127
  7. BYDUREON [Suspect]
     Active Substance: EXENATIDE
     Indication: Diabetes mellitus
     Route: 065

REACTIONS (9)
  - Breast cancer [Unknown]
  - Rash papular [Unknown]
  - Nausea [Unknown]
  - Vomiting [Recovered/Resolved]
  - Thirst [Unknown]
  - Skin exfoliation [Unknown]
  - Diabetes mellitus [Unknown]
  - Vomiting [Unknown]
  - Drug interaction [Unknown]

NARRATIVE: CASE EVENT DATE: 20220101
